FAERS Safety Report 8623518 (Version 2)
Quarter: 2012Q4

REPORT INFORMATION
  Report Type: 
  Country: SG (occurrence: SG)
  Receive Date: 20120620
  Receipt Date: 20120906
  Transmission Date: 20130627
  Serious: Yes (Life-Threatening, Hospitalization)
  Sender: FDA-Public Use
  Company Number: SG-SANOFI-AVENTIS-2012SA041533

PATIENT
  Age: 61 Year
  Sex: Male

DRUGS (1)
  1. CLEXANE [Suspect]
     Indication: PERCUTANEOUS CORONARY INTERVENTION
     Route: 022

REACTIONS (2)
  - Thrombosis in device [Recovered/Resolved]
  - Incorrect route of drug administration [Recovered/Resolved]
